FAERS Safety Report 23975699 (Version 1)
Quarter: 2024Q2

REPORT INFORMATION
  Report Type: Spontaneous
  Country: US (occurrence: US)
  Receive Date: 20240614
  Receipt Date: 20240614
  Transmission Date: 20240716
  Serious: No
  Sender: FDA-Public Use
  Company Number: None

PATIENT

DRUGS (1)
  1. LISDEXAMFETAMINE DIMESYLATE [Suspect]
     Active Substance: LISDEXAMFETAMINE DIMESYLATE
     Indication: Product used for unknown indication
     Dosage: STRENGTH: 40 MG

REACTIONS (5)
  - Influenza like illness [Unknown]
  - Palpitations [Unknown]
  - Therapeutic response changed [Unknown]
  - Product packaging quantity issue [Unknown]
  - Product substitution issue [Unknown]
